FAERS Safety Report 8307017-5 (Version None)
Quarter: 2012Q2

REPORT INFORMATION
  Report Type: 
  Country: None (occurrence: None)
  Receive Date: 20120424
  Receipt Date: 20120416
  Transmission Date: 20120825
  Serious: Yes (Hospitalization, Other)
  Sender: FDA-Public Use
  Company Number: PHHY2011VE93413

PATIENT
  Sex: Female

DRUGS (5)
  1. ZOLEDRONOC ACID [Suspect]
     Indication: OSTEOPOROSIS
     Dosage: 5 MG, ONCE A YEAR
     Route: 042
     Dates: start: 20100816
  2. ZOLEDRONOC ACID [Suspect]
     Dosage: 5 MG, ONCE A YEAR
     Route: 042
     Dates: start: 20120306
  3. BRUGESIC [Concomitant]
     Indication: PAIN
     Dosage: 1 PILL ONCE A DAY
  4. CALCIBON (CALCIUM CITRATE) [Concomitant]
     Dosage: 2 TABLETS DAILY. 1,500 MG CALCIUM CITRATE TETRAHYDRATE (EQUIV. TO 315MG OF ELEMENTAL CALCIUM) VIT D3
  5. COMBAREN [Concomitant]
     Indication: PAIN
     Dosage: 1 DF (50 MG/50 MG) 1 PILL ONCE A DAY
     Route: 048

REACTIONS (10)
  - FEELING ABNORMAL [None]
  - MYALGIA [None]
  - BONE PAIN [None]
  - RHEUMATOID ARTHRITIS [None]
  - GUN SHOT WOUND [None]
  - FALL [None]
  - ARTHRALGIA [None]
  - LIMB INJURY [None]
  - PATIENT-DEVICE INCOMPATIBILITY [None]
  - NASOPHARYNGITIS [None]
